FAERS Safety Report 10168485 (Version 1)
Quarter: 2014Q2

REPORT INFORMATION
  Report Type: Report from Study
  Country: US (occurrence: US)
  Receive Date: 20140513
  Receipt Date: 20140513
  Transmission Date: 20141212
  Serious: Yes (Hospitalization)
  Sender: FDA-Public Use
  Company Number: US-BIOGENIDEC-2014BI040410

PATIENT
  Age: 61 Year
  Sex: Male

DRUGS (1)
  1. TECFIDERA [Suspect]
     Indication: MULTIPLE SCLEROSIS
     Dates: start: 20130624

REACTIONS (4)
  - Nephrolithiasis [Not Recovered/Not Resolved]
  - Sepsis [Recovered/Resolved]
  - Encephalitis [Recovered/Resolved]
  - Tremor [Not Recovered/Not Resolved]
